FAERS Safety Report 6986264-9 (Version None)
Quarter: 2010Q3

REPORT INFORMATION
  Report Type: 
  Country: None (occurrence: None)
  Receive Date: 20100915
  Receipt Date: 20100901
  Transmission Date: 20110219
  Serious: Yes (Other)
  Sender: FDA-Public Use
  Company Number: JP-AMGEN-KDC437223

PATIENT
  Sex: Female
  Weight: 45 kg

DRUGS (13)
  1. VECTIBIX [Suspect]
     Indication: COLORECTAL CANCER
     Route: 041
     Dates: start: 20100720
  2. IRINOTECAN HYDROCHLORIDE [Suspect]
     Indication: COLORECTAL CANCER
     Route: 041
     Dates: start: 20100720
  3. FLUOROURACIL [Suspect]
     Indication: COLORECTAL CANCER
     Route: 040
     Dates: start: 20100720
  4. FLUOROURACIL [Suspect]
     Route: 041
     Dates: start: 20100720
  5. CALCIUM LEVOFOLINATE [Suspect]
     Indication: COLORECTAL CANCER
     Route: 041
     Dates: start: 20100720
  6. DECADRON [Concomitant]
     Route: 042
  7. ALOXI [Concomitant]
     Route: 042
  8. NORVASC [Concomitant]
     Route: 048
  9. GASTROM [Concomitant]
     Route: 048
  10. ULCERLMIN [Concomitant]
     Route: 048
  11. PROMAC D [Concomitant]
     Route: 048
  12. BIOFERMIN R [Concomitant]
     Route: 048
  13. PROTECADIN [Concomitant]
     Route: 048

REACTIONS (5)
  - ANAEMIA [None]
  - DECREASED APPETITE [None]
  - NEUTROPHIL COUNT DECREASED [None]
  - RASH [None]
  - STOMATITIS [None]
